FAERS Safety Report 12447517 (Version 1)
Quarter: 2016Q2

REPORT INFORMATION
  Report Type: Spontaneous
  Country: US (occurrence: None)
  Receive Date: 20160607
  Receipt Date: 20160607
  Transmission Date: 20160815
  Serious: No
  Sender: FDA-Public Use
  Company Number: None

PATIENT
  Age: 54 Year
  Sex: Female

DRUGS (18)
  1. XELJANZ [Suspect]
     Active Substance: TOFACITINIB CITRATE
     Indication: ANKYLOSING SPONDYLITIS
     Route: 048
     Dates: start: 20150312
  2. PRILOSEC [Concomitant]
     Active Substance: OMEPRAZOLE MAGNESIUM
  3. CYMBALTA [Concomitant]
     Active Substance: DULOXETINE HYDROCHLORIDE
  4. FUROSEMIDE. [Concomitant]
     Active Substance: FUROSEMIDE
  5. PROBIOTIC [Concomitant]
     Active Substance: PROBIOTICS NOS
  6. BUT/ASA/CAFF [Concomitant]
     Active Substance: BUTALBITAL\CAFFEINE\SALICYLIC ACID
  7. MULTI CAP COMPLETE [Concomitant]
  8. VITAMIN B12 [Concomitant]
     Active Substance: CYANOCOBALAMIN
  9. CARAFATE [Concomitant]
     Active Substance: SUCRALFATE
  10. PREDNISONE. [Concomitant]
     Active Substance: PREDNISONE
  11. ESTRADIOL. [Concomitant]
     Active Substance: ESTRADIOL
  12. VOLTAREN [Concomitant]
     Active Substance: DICLOFENAC SODIUM
  13. BENADRYL [Concomitant]
     Active Substance: DIPHENHYDRAMINE HYDROCHLORIDE
  14. BEANO [Concomitant]
     Active Substance: ASPERGILLUS NIGER .ALPHA.-GALACTOSIDASE
  15. POTASSIUM [Concomitant]
     Active Substance: POTASSIUM
  16. FLUITCASONE [Concomitant]
  17. TYLENOL [Concomitant]
     Active Substance: ACETAMINOPHEN
  18. ATENOLOL. [Concomitant]
     Active Substance: ATENOLOL

REACTIONS (2)
  - Rash [None]
  - Oral pain [None]

NARRATIVE: CASE EVENT DATE: 201606
